FAERS Safety Report 7296422-4 (Version None)
Quarter: 2011Q1

REPORT INFORMATION
  Report Type: 
  Country: None (occurrence: None)
  Receive Date: 20110216
  Receipt Date: 20110208
  Transmission Date: 20110831
  Serious: Yes (Death, Hospitalization)
  Sender: FDA-Public Use
  Company Number: US-BRISTOL-MYERS SQUIBB COMPANY-15361793

PATIENT
  Age: 60 Year
  Sex: Female
  Weight: 80 kg

DRUGS (16)
  1. PROTONIX [Concomitant]
  2. PACLITAXEL [Suspect]
     Indication: NON-SMALL CELL LUNG CANCER
     Dosage: LAST DOSE:15SEP10 ON DAY 1 AND 22
     Route: 042
     Dates: start: 20100915
  3. FLONASE [Concomitant]
  4. CARBOPLATIN [Suspect]
     Indication: NON-SMALL CELL LUNG CANCER
     Dosage: 1 DF=6 AUC; 569 MG ON DAYS 1 AND 22
     Route: 042
     Dates: start: 20100915
  5. ZOFRAN [Concomitant]
  6. SENOKOT [Concomitant]
  7. CETUXIMAB [Suspect]
     Indication: NON-SMALL CELL LUNG CANCER
     Dosage: 400MG/M2 ON DAY 1 OF CYCLE 1 250MG/M2 ON DAYS 8,15,22,29 AND 36 FROM 22SEP10-ONG LAST DOSE:22SEP10
     Route: 042
     Dates: start: 20100915
  8. MIRALAX [Concomitant]
  9. LISINOPRIL [Concomitant]
  10. QUINAPRIL HCL + HCTZ [Concomitant]
  11. MS CONTIN [Concomitant]
  12. MEGACE [Concomitant]
  13. NORVASC [Concomitant]
  14. DEXAMETHASONE [Concomitant]
  15. XANAX [Concomitant]
  16. ALEVE [Concomitant]

REACTIONS (9)
  - RESPIRATORY FAILURE [None]
  - PLATELET COUNT DECREASED [None]
  - VOMITING [None]
  - NAUSEA [None]
  - HYPOXIA [None]
  - DYSPNOEA [None]
  - DEHYDRATION [None]
  - CARDIO-RESPIRATORY ARREST [None]
  - CONSTIPATION [None]
